FAERS Safety Report 11277017 (Version 1)
Quarter: 2015Q3

REPORT INFORMATION
  Report Type: Spontaneous
  Country: NL (occurrence: NL)
  Receive Date: 20150716
  Receipt Date: 20150716
  Transmission Date: 20151125
  Serious: Yes (Other)
  Sender: FDA-Public Use
  Company Number: NL-TEVA-576663ISR

PATIENT
  Age: 54 Year
  Sex: Male
  Weight: 134 kg

DRUGS (5)
  1. GLICLAZIDE TABLET MGA 80MG [Concomitant]
     Dosage: 80 MILLIGRAM DAILY; ONCE DAILY ONE PIECE
     Route: 048
  2. PANTOZOL TABLET MSR 20MG [Concomitant]
     Dosage: 20 MILLIGRAM DAILY; ONCE DAILY ONE PIECE
     Route: 048
  3. CLOPIDOGREL TABLET 75MG (HCL) [Concomitant]
     Dosage: 75 MILLIGRAM DAILY; ONCE DAILY ONE PIECE
     Route: 048
  4. METFORMIN [Suspect]
     Active Substance: METFORMIN HYDROCHLORIDE
     Indication: TYPE 2 DIABETES MELLITUS
     Dosage: 1500 MILLIGRAM DAILY; 3 TIMES DAILY ONE PIECE
     Route: 048
     Dates: start: 201504, end: 20150624
  5. HYDROXOCOBALAMINE INJVLST  500UG/ML [Concomitant]
     Dosage: ONCE EVERY 2 MONTHS
     Route: 065

REACTIONS (1)
  - Acute kidney injury [Recovered/Resolved]

NARRATIVE: CASE EVENT DATE: 20150616
